FAERS Safety Report 24014347 (Version 1)
Quarter: 2024Q2

REPORT INFORMATION
  Report Type: Spontaneous
  Country: US (occurrence: None)
  Receive Date: 20240625
  Receipt Date: 20240625
  Transmission Date: 20240716
  Serious: Yes (Hospitalization)
  Sender: FDA-Public Use
  Company Number: None

PATIENT
  Sex: Female

DRUGS (9)
  1. ENVARSUS XR [Suspect]
     Active Substance: TACROLIMUS
     Indication: Organ transplant
     Dosage: OTHER FREQUENCY : IN THE MORNING;?
     Route: 048
     Dates: start: 20210216
  2. ALIVE MULTI CHW CHILDRNS [Concomitant]
  3. CEFTRIAXONE [Concomitant]
  4. CORICIDIN [Concomitant]
  5. MYCOPHENOLIC ACID [Concomitant]
     Active Substance: MYCOPHENOLIC ACID
  6. NORCO [Concomitant]
  7. PLAVIX [Concomitant]
     Active Substance: CLOPIDOGREL BISULFATE
  8. SALINE WOUND SPR WASH [Concomitant]
  9. TAMIFLU [Concomitant]
     Active Substance: OSELTAMIVIR PHOSPHATE

REACTIONS (2)
  - Lymphadenopathy [None]
  - Influenza [None]
